FAERS Safety Report 4614235-6 (Version None)
Quarter: 2005Q1

REPORT INFORMATION
  Report Type: 
  Country: None (occurrence: None)
  Receive Date: 20050315
  Receipt Date: 20050217
  Transmission Date: 20050727
  Serious: Yes (Death)
  Sender: FDA-Public Use
  Company Number: US_0502113333

PATIENT
  Age: 9 Year
  Sex: Male

DRUGS (1)
  1. ZYPREXA [Suspect]
     Indication: ABNORMAL BEHAVIOUR
     Dates: start: 20020201

REACTIONS (1)
  - DIABETES MELLITUS [None]
